FAERS Safety Report 8838925 (Version 1)
Quarter: 2012Q4

REPORT INFORMATION
  Report Type: 
  Country: AT (occurrence: AT)
  Receive Date: 20121015
  Receipt Date: 20121015
  Transmission Date: 20130627
  Serious: Yes (Other)
  Sender: FDA-Public Use
  Company Number: AT-AMGEN-AUTSP2012064822

PATIENT

DRUGS (1)
  1. XGEVA [Suspect]
     Indication: HYPERCALCAEMIA OF MALIGNANCY

REACTIONS (1)
  - Hypocalcaemia [Unknown]
